FAERS Safety Report 21500029 (Version 7)
Quarter: 2023Q4

REPORT INFORMATION
  Report Type: Spontaneous
  Country: US (occurrence: US)
  Receive Date: 20221024
  Receipt Date: 20231026
  Transmission Date: 20240110
  Serious: Yes (Hospitalization, Other)
  Sender: FDA-Public Use
  Company Number: US-PFIZER INC-PV202200088284

PATIENT
  Age: 73 Year
  Sex: Female

DRUGS (19)
  1. IBRANCE [Suspect]
     Active Substance: PALBOCICLIB
     Dosage: DAILY FOR 21 DAYS
     Route: 048
     Dates: start: 20180309
  2. IBRANCE [Suspect]
     Active Substance: PALBOCICLIB
     Dosage: ONCE DAILY 21 DAYS ON 7 DAYS OFF
     Route: 048
     Dates: start: 20191031
  3. IBRANCE [Suspect]
     Active Substance: PALBOCICLIB
     Dosage: DAILY 21 DAYS ON, 7 DAYS OFF
     Route: 048
     Dates: start: 20210220
  4. IBRANCE [Suspect]
     Active Substance: PALBOCICLIB
     Dosage: DAILY FOR 21 DAYS, THEN 7 DAYS OFF
     Route: 048
     Dates: start: 20221221
  5. IBRANCE [Suspect]
     Active Substance: PALBOCICLIB
     Dosage: DAILY X21 DAYS, 7 DAYS OFF
     Route: 048
     Dates: start: 20221229
  6. IBRANCE [Suspect]
     Active Substance: PALBOCICLIB
     Dosage: DAILY X21 DAYS, 7 DAYS OFF
     Route: 048
     Dates: start: 20221222
  7. ATORVASTATIN [Concomitant]
     Active Substance: ATORVASTATIN
     Dosage: UNK
  8. CLOPIDOGREL [Concomitant]
     Active Substance: CLOPIDOGREL BISULFATE
     Dosage: UNK
  9. CALCIUM [Concomitant]
     Active Substance: CALCIUM
     Dosage: UNK
  10. ASPIRIN [Concomitant]
     Active Substance: ASPIRIN
     Dosage: UNK (81MG EC DR LOW DOSE TABLETS)
  11. CARVEDILOL [Concomitant]
     Active Substance: CARVEDILOL
     Dosage: UNK
  12. CITALOPRAM [Concomitant]
     Active Substance: CITALOPRAM HYDROBROMIDE
     Dosage: UNK
  13. FUROSEMIDE [Concomitant]
     Active Substance: FUROSEMIDE
     Dosage: UNK
  14. LETROZOLE [Concomitant]
     Active Substance: LETROZOLE
     Dosage: UNK
  15. LISINOPRIL [Concomitant]
     Active Substance: LISINOPRIL
     Dosage: UNK
  16. ENTRESTO [Concomitant]
     Active Substance: SACUBITRIL\VALSARTAN
     Dosage: UNK (24-26 MG)
  17. METOPROLOL [Concomitant]
     Active Substance: METOPROLOL
     Dosage: UNK
  18. ASPIRIN [Concomitant]
     Active Substance: ASPIRIN
     Dosage: UNK
  19. METOPROLOL TARTRATE [Concomitant]
     Active Substance: METOPROLOL TARTRATE
     Dosage: UNK

REACTIONS (5)
  - Cardiac disorder [Recovered/Resolved]
  - Cataract [Recovered/Resolved]
  - Pain [Recovered/Resolved]
  - Stress [Recovered/Resolved]
  - Product dose omission in error [Recovered/Resolved]

NARRATIVE: CASE EVENT DATE: 20221201
